FAERS Safety Report 4336491-4 (Version None)
Quarter: 2004Q2

REPORT INFORMATION
  Report Type: 
  Country: None (occurrence: None)
  Receive Date: 20040409
  Receipt Date: 20040409
  Transmission Date: 20050107
  Serious: Yes (Life-Threatening, Hospitalization, Disabling)
  Sender: FDA-Public Use
  Company Number: None

PATIENT
  Age: 38 Year
  Sex: Male
  Weight: 108.8633 kg

DRUGS (1)
  1. TOPAMAX [Suspect]
     Indication: PAIN
     Dosage: 100 MG A DAY FIRST WEEK ORAL, 200 MG A DAY SECOND WEEK
     Route: 048
     Dates: start: 20020131, end: 20020213

REACTIONS (5)
  - AMNESIA [None]
  - EYE IRRITATION [None]
  - HYPOAESTHESIA [None]
  - INSOMNIA [None]
  - OVERDOSE [None]
